FAERS Safety Report 23702792 (Version 1)
Quarter: 2024Q2

REPORT INFORMATION
  Report Type: Spontaneous
  Country: US (occurrence: US)
  Receive Date: 20240403
  Receipt Date: 20240403
  Transmission Date: 20240716
  Serious: Yes (Hospitalization)
  Sender: FDA-Public Use
  Company Number: US-Eisai-E2080-00173-SPO-US

PATIENT
  Age: 13 Year
  Sex: Male
  Weight: 40 kg

DRUGS (33)
  1. BANZEL [Suspect]
     Active Substance: RUFINAMIDE
     Indication: Lennox-Gastaut syndrome
     Dates: start: 20090420, end: 20090422
  2. BANZEL [Suspect]
     Active Substance: RUFINAMIDE
     Dates: start: 20090423, end: 20090424
  3. BANZEL [Suspect]
     Active Substance: RUFINAMIDE
     Dates: start: 20090425, end: 20090426
  4. BANZEL [Suspect]
     Active Substance: RUFINAMIDE
     Dates: start: 20090427, end: 20090428
  5. BANZEL [Suspect]
     Active Substance: RUFINAMIDE
     Dates: start: 20090429, end: 20090522
  6. BANZEL [Suspect]
     Active Substance: RUFINAMIDE
     Dates: start: 20090523, end: 20090621
  7. BANZEL [Suspect]
     Active Substance: RUFINAMIDE
     Dates: start: 20090622
  8. TOPAMAX [Concomitant]
     Active Substance: TOPIRAMATE
     Dosage: 200/200/150 X 3 PER DAY
  9. KEPPRA [Concomitant]
     Active Substance: LEVETIRACETAM
     Dosage: 100 MG/ML ORAL SOLUTION
  10. DIGOXIN [Concomitant]
     Active Substance: DIGOXIN
     Dosage: 0.5 MG /ML
  11. PREVACID [Concomitant]
     Active Substance: LANSOPRAZOLE
     Dosage: 60 MG SOLUBLE TABLETS
  12. SOUCEF MULTIVITAMIN [Concomitant]
  13. SELENIUM [Concomitant]
     Active Substance: SELENIUM
     Dosage: 40 MCG/ML
  14. ERGOCALCIFEROL [Concomitant]
     Active Substance: ERGOCALCIFEROL
     Dosage: 8000 IU/ML
  15. CULTURELLE [Concomitant]
     Active Substance: LACTOBACILLUS RHAMNOSUS
  16. DIAZEPAM [Concomitant]
     Active Substance: DIAZEPAM
     Dosage: RECTALLY AS NEEDED
  17. DIAZEPAM [Concomitant]
     Active Substance: DIAZEPAM
     Dosage: 1/2 TAB EVERY 3 HRS AS NEEDED
  18. LORAZEPAM [Concomitant]
     Active Substance: LORAZEPAM
     Dosage: 1 TABLET EVERY 8 HRS AS NEEDED
  19. MOTRIN [Concomitant]
     Active Substance: IBUPROFEN
     Dosage: 100 MG/5 ML
  20. TYLENOL [Concomitant]
     Active Substance: ACETAMINOPHEN
     Dosage: 160 MG/5ML EVERY 4-6 HRS
  21. ACETAMINOPHEN AND CODEINE [Concomitant]
     Active Substance: ACETAMINOPHEN\CODEINE PHOSPHATE
     Dosage: 7.5 ML-15 ML VERY 6 HRS
  22. OXYCODONE [Concomitant]
     Active Substance: OXYCODONE\OXYCODONE HYDROCHLORIDE
     Dosage: 5 MG/ML EVERY 4 HRS AS NEEDED
  23. MAALOX ANTACID [Concomitant]
     Active Substance: ALUMINUM HYDROXIDE\DIMETHICONE\MAGNESIUM HYDROXIDE
     Dosage: AS NEEDED
  24. ZANTAC [Concomitant]
     Active Substance: RANITIDINE HYDROCHLORIDE
     Dosage: 15 MG/ML AS NEEDED
  25. ONDANSETRON [Concomitant]
     Active Substance: ONDANSETRON
     Dosage: AS NEEDED
  26. CICLOPIROX [Concomitant]
     Active Substance: CICLOPIROX\TOCOPHEROL
     Indication: Tinea versicolour
     Dosage: TOPICAL AS NEEDED
  27. NYSTATIN  TRIAMCINOLONE ACETONIDE CREAM [Concomitant]
     Indication: Fungal infection
     Dosage: TOPICAL AS NEEDED
  28. CLARITIN SYRUP [Concomitant]
     Dosage: 5 MG/5 ML 5-10 ML/DAY AS NEEDED
  29. EPIPEN [Concomitant]
     Active Substance: EPINEPHRINE
     Dosage: SUBCUTANEOUS AS NEEDED
  30. PHENOBARBITAL [Concomitant]
     Active Substance: PHENOBARBITAL
     Dosage: 20 MG/5 ML
  31. EPIDIOLEX [Concomitant]
     Active Substance: CANNABIDIOL
     Indication: Product used for unknown indication
  32. ONFI [Concomitant]
     Active Substance: CLOBAZAM
     Indication: Product used for unknown indication
  33. BENZOIC ACID [Concomitant]
     Active Substance: BENZOIC ACID
     Indication: Product used for unknown indication

REACTIONS (2)
  - Drooling [Recovered/Resolved]
  - Vomiting [Recovered/Resolved]

NARRATIVE: CASE EVENT DATE: 20090513
